FAERS Safety Report 9958956 (Version 1)
Quarter: 2014Q1

REPORT INFORMATION
  Report Type: Spontaneous
  Country: US (occurrence: None)
  Receive Date: 20140228
  Receipt Date: 20140228
  Transmission Date: 20141002
  Serious: No
  Sender: FDA-Public Use
  Company Number: None

PATIENT
  Age: 75 Year
  Sex: Female
  Weight: 74.84 kg

DRUGS (9)
  1. NIACIN [Suspect]
     Indication: BLOOD CHOLESTEROL ABNORMAL
     Route: 048
     Dates: start: 20140107, end: 20140219
  2. SYNTHROID [Concomitant]
  3. LOSARTAN [Concomitant]
  4. FAMOTIDINE [Concomitant]
  5. ESCITALOPRAM [Concomitant]
  6. VITAMIN C [Concomitant]
  7. CALCIUM [Concomitant]
  8. VITAMIN D [Concomitant]
  9. VITAMIN K [Concomitant]

REACTIONS (11)
  - Flushing [None]
  - Skin burning sensation [None]
  - Thermal burn [None]
  - Pruritus [None]
  - Urticaria [None]
  - Local swelling [None]
  - Insomnia [None]
  - Palpitations [None]
  - Product quality issue [None]
  - Product physical issue [None]
  - Restlessness [None]
